FAERS Safety Report 17845835 (Version 1)
Quarter: 2020Q2

REPORT INFORMATION
  Report Type: Spontaneous
  Country: US (occurrence: US)
  Receive Date: 20200530
  Receipt Date: 20200530
  Transmission Date: 20200714
  Serious: No
  Sender: FDA-Public Use
  Company Number: None

PATIENT
  Age: 39 Year
  Sex: Female
  Weight: 65.25 kg

DRUGS (5)
  1. PROZAC [Concomitant]
     Active Substance: FLUOXETINE HYDROCHLORIDE
  2. METHYLPREDNISOLONE TABLETS, USP 4 MG [Suspect]
     Active Substance: METHYLPREDNISOLONE
     Indication: BACK INJURY
     Dosage: ?          QUANTITY:21 TABLET(S);OTHER FREQUENCY:^AS DIRECTED^;?
     Route: 048
  3. FISH PIL SUPPLEMENT [Concomitant]
  4. VITAMIN D [Concomitant]
     Active Substance: VITAMIN D NOS
  5. MULTIVITAMIN [Concomitant]
     Active Substance: VITAMINS

REACTIONS (3)
  - Paraesthesia oral [None]
  - Headache [None]
  - Contusion [None]

NARRATIVE: CASE EVENT DATE: 20200529
